FAERS Safety Report 4648654-9 (Version None)
Quarter: 2005Q2

REPORT INFORMATION
  Report Type: 
  Country: None (occurrence: None)
  Receive Date: 20050427
  Receipt Date: 20050329
  Transmission Date: 20051028
  Serious: Yes (Hospitalization)
  Sender: FDA-Public Use
  Company Number: PAR_0011_2005

PATIENT
  Age: 66 Year
  Sex: Female

DRUGS (1)
  1. ISOPTIN SR [Suspect]
     Dosage: DF PO
     Route: 048

REACTIONS (1)
  - MALAISE [None]
